FAERS Safety Report 18277725 (Version 1)
Quarter: 2020Q3

REPORT INFORMATION
  Report Type: Spontaneous
  Country: FR (occurrence: FR)
  Receive Date: 20200917
  Receipt Date: 20200917
  Transmission Date: 20201103
  Serious: Yes (Hospitalization, Other)
  Sender: FDA-Public Use
  Company Number: NVSC2020FR252209

PATIENT
  Age: 27 Year
  Sex: Male

DRUGS (2)
  1. ALPRAZOLAM. [Suspect]
     Active Substance: ALPRAZOLAM
     Indication: PRODUCT USED FOR UNKNOWN INDICATION
     Dosage: 1 DF, UNKNOWN (TOTAL)
     Route: 048
  2. SKENAN [Suspect]
     Active Substance: MORPHINE SULFATE
     Indication: PRODUCT USED FOR UNKNOWN INDICATION
     Dosage: UNK
     Route: 065

REACTIONS (8)
  - Miosis [Recovered/Resolved]
  - Hypothermia [Recovered/Resolved]
  - Bradycardia [Recovered/Resolved]
  - Intentional product misuse [Not Recovered/Not Resolved]
  - Hypoglycaemia [Recovered/Resolved]
  - Coma [Recovered/Resolved]
  - Overdose [Recovered/Resolved]
  - Bradypnoea [Recovered/Resolved]
